FAERS Safety Report 16154462 (Version 1)
Quarter: 2019Q2

REPORT INFORMATION
  Report Type: Spontaneous
  Country: US (occurrence: US)
  Receive Date: 20190403
  Receipt Date: 20190403
  Transmission Date: 20190711
  Serious: No
  Sender: FDA-Public Use
  Company Number: US-TEVA-2019-US-1028884

PATIENT

DRUGS (1)
  1. MICON 2% [Suspect]
     Active Substance: MICONAZOLE

REACTIONS (1)
  - Burning sensation [Unknown]
